FAERS Safety Report 4718492-7 (Version None)
Quarter: 2005Q3

REPORT INFORMATION
  Report Type: 
  Country: None (occurrence: None)
  Receive Date: 20050720
  Receipt Date: 20050713
  Transmission Date: 20060218
  Serious: Yes (Other)
  Sender: FDA-Public Use
  Company Number: PHNR2005AU01109

PATIENT

DRUGS (1)
  1. ZOMETA [Suspect]

REACTIONS (1)
  - ASEPTIC NECROSIS BONE [None]
